FAERS Safety Report 25503668 (Version 1)
Quarter: 2025Q3

REPORT INFORMATION
  Report Type: Report from Study
  Country: US (occurrence: US)
  Receive Date: 20250702
  Receipt Date: 20250702
  Transmission Date: 20251021
  Serious: Yes (Death, Hospitalization)
  Sender: MYLAN
  Company Number: US-MYLANLABS-2025M1055050

PATIENT
  Age: 24 Day
  Sex: Female

DRUGS (32)
  1. EPINEPHRINE [Suspect]
     Active Substance: EPINEPHRINE
     Indication: Capillary leak syndrome
  2. EPINEPHRINE [Suspect]
     Active Substance: EPINEPHRINE
     Route: 065
  3. EPINEPHRINE [Suspect]
     Active Substance: EPINEPHRINE
     Route: 065
  4. EPINEPHRINE [Suspect]
     Active Substance: EPINEPHRINE
  5. METHYLPREDNISOLONE [Suspect]
     Active Substance: METHYLPREDNISOLONE
     Indication: Capillary leak syndrome
     Dosage: 1 MILLIGRAM/KILOGRAM, BID (FOR 3-5 DAYS)
  6. METHYLPREDNISOLONE [Suspect]
     Active Substance: METHYLPREDNISOLONE
     Dosage: 1 MILLIGRAM/KILOGRAM, BID (FOR 3-5 DAYS)
     Route: 065
  7. METHYLPREDNISOLONE [Suspect]
     Active Substance: METHYLPREDNISOLONE
     Dosage: 1 MILLIGRAM/KILOGRAM, BID (FOR 3-5 DAYS)
     Route: 065
  8. METHYLPREDNISOLONE [Suspect]
     Active Substance: METHYLPREDNISOLONE
     Dosage: 1 MILLIGRAM/KILOGRAM, BID (FOR 3-5 DAYS)
  9. DOPAMINE [Suspect]
     Active Substance: DOPAMINE HYDROCHLORIDE
     Indication: Capillary leak syndrome
  10. DOPAMINE [Suspect]
     Active Substance: DOPAMINE HYDROCHLORIDE
     Route: 065
  11. DOPAMINE [Suspect]
     Active Substance: DOPAMINE HYDROCHLORIDE
     Route: 065
  12. DOPAMINE [Suspect]
     Active Substance: DOPAMINE HYDROCHLORIDE
  13. DOBUTAMINE [Suspect]
     Active Substance: DOBUTAMINE HYDROCHLORIDE
     Indication: Capillary leak syndrome
  14. DOBUTAMINE [Suspect]
     Active Substance: DOBUTAMINE HYDROCHLORIDE
     Route: 065
  15. DOBUTAMINE [Suspect]
     Active Substance: DOBUTAMINE HYDROCHLORIDE
     Route: 065
  16. DOBUTAMINE [Suspect]
     Active Substance: DOBUTAMINE HYDROCHLORIDE
  17. AMINOPHYLLINE [Suspect]
     Active Substance: AMINOPHYLLINE
     Indication: Capillary leak syndrome
  18. AMINOPHYLLINE [Suspect]
     Active Substance: AMINOPHYLLINE
  19. AMINOPHYLLINE [Suspect]
     Active Substance: AMINOPHYLLINE
     Route: 042
  20. AMINOPHYLLINE [Suspect]
     Active Substance: AMINOPHYLLINE
     Route: 042
  21. AMINOPHYLLINE [Suspect]
     Active Substance: AMINOPHYLLINE
     Dosage: 2 MILLIGRAM/KILOGRAM, Q8H
  22. AMINOPHYLLINE [Suspect]
     Active Substance: AMINOPHYLLINE
     Dosage: 2 MILLIGRAM/KILOGRAM, Q8H
  23. AMINOPHYLLINE [Suspect]
     Active Substance: AMINOPHYLLINE
     Dosage: 2 MILLIGRAM/KILOGRAM, Q8H
     Route: 042
  24. AMINOPHYLLINE [Suspect]
     Active Substance: AMINOPHYLLINE
     Dosage: 2 MILLIGRAM/KILOGRAM, Q8H
     Route: 042
  25. IMMUNE GLOBULIN NOS [Suspect]
     Active Substance: IMMUNE GLOBULIN NOS
     Indication: Capillary leak syndrome
     Dosage: UNK, QD (1G/KG, FOR 3 DAYS)
  26. IMMUNE GLOBULIN NOS [Suspect]
     Active Substance: IMMUNE GLOBULIN NOS
     Dosage: UNK, QD (1G/KG, FOR 3 DAYS)
     Route: 042
  27. IMMUNE GLOBULIN NOS [Suspect]
     Active Substance: IMMUNE GLOBULIN NOS
     Dosage: UNK, QD (1G/KG, FOR 3 DAYS)
     Route: 042
  28. IMMUNE GLOBULIN NOS [Suspect]
     Active Substance: IMMUNE GLOBULIN NOS
     Dosage: UNK, QD (1G/KG, FOR 3 DAYS)
  29. INFLIXIMAB [Suspect]
     Active Substance: INFLIXIMAB
     Indication: Capillary leak syndrome
     Dosage: 5 MILLIGRAM/KILOGRAM, QD 9FOR 3-5 DAYS)
  30. INFLIXIMAB [Suspect]
     Active Substance: INFLIXIMAB
     Dosage: 5 MILLIGRAM/KILOGRAM, QD 9FOR 3-5 DAYS)
     Route: 065
  31. INFLIXIMAB [Suspect]
     Active Substance: INFLIXIMAB
     Dosage: 5 MILLIGRAM/KILOGRAM, QD 9FOR 3-5 DAYS)
     Route: 065
  32. INFLIXIMAB [Suspect]
     Active Substance: INFLIXIMAB
     Dosage: 5 MILLIGRAM/KILOGRAM, QD 9FOR 3-5 DAYS)

REACTIONS (1)
  - Drug ineffective [Fatal]
